FAERS Safety Report 21315194 (Version 1)
Quarter: 2022Q3

REPORT INFORMATION
  Report Type: Spontaneous
  Country: CN (occurrence: None)
  Receive Date: 20220909
  Receipt Date: 20220909
  Transmission Date: 20221027
  Serious: Yes (Hospitalization)
  Sender: FDA-Public Use
  Company Number: 2022A307350

PATIENT
  Age: 55 Year
  Sex: Female

DRUGS (2)
  1. GEFITINIB [Suspect]
     Active Substance: GEFITINIB
     Indication: Lung adenocarcinoma
     Route: 048
  2. OSIMERTINIB [Suspect]
     Active Substance: OSIMERTINIB
     Indication: Lung adenocarcinoma
     Route: 048

REACTIONS (5)
  - Metastases to meninges [Unknown]
  - Acquired gene mutation [Unknown]
  - Drug resistance [Unknown]
  - Diarrhoea [Unknown]
  - Leukopenia [Unknown]
